FAERS Safety Report 4665887-6 (Version None)
Quarter: 2005Q2

REPORT INFORMATION
  Report Type: 
  Country: None (occurrence: None)
  Receive Date: 20050517
  Receipt Date: 20050504
  Transmission Date: 20051028
  Serious: Yes (Death, Other)
  Sender: FDA-Public Use
  Company Number: USA050597251

PATIENT
  Age: 84 Year
  Sex: Female

DRUGS (2)
  1. EVISTA [Suspect]
     Dates: start: 20020101, end: 20041001
  2. DILANTIN [Concomitant]

REACTIONS (6)
  - BREAST CANCER [None]
  - METASTASES TO BONE [None]
  - METASTASES TO LIVER [None]
  - METASTASES TO SPINE [None]
  - METASTASES TO SPLEEN [None]
  - RECURRENT CANCER [None]
